FAERS Safety Report 5472635-9 (Version None)
Quarter: 2007Q4

REPORT INFORMATION
  Report Type: 
  Country: None (occurrence: None)
  Receive Date: 20071001
  Receipt Date: 20060905
  Transmission Date: 20080405
  Serious: No
  Sender: FDA-Public Use
  Company Number: US-ASTRAZENECA-2006UW17445

PATIENT
  Age: 63 Year
  Sex: Female
  Weight: 71.7 kg

DRUGS (2)
  1. ARIMIDEX [Suspect]
     Indication: BREAST CANCER FEMALE
     Route: 048
     Dates: start: 20060201
  2. CALCIUM [Concomitant]

REACTIONS (8)
  - ALOPECIA [None]
  - ARTHRALGIA [None]
  - FEELING ABNORMAL [None]
  - GINGIVAL BLEEDING [None]
  - ONYCHOCLASIS [None]
  - PARAESTHESIA [None]
  - PARAESTHESIA ORAL [None]
  - WEIGHT INCREASED [None]
